FAERS Safety Report 21647398 (Version 1)
Quarter: 2022Q4

REPORT INFORMATION
  Report Type: Other
  Country: ZA (occurrence: ZA)
  Receive Date: 20221128
  Receipt Date: 20221128
  Transmission Date: 20230113
  Serious: Yes (Other)
  Sender: FDA-Public Use
  Company Number: ZA-MACLEODS PHARMA UK LTD-MAC2022036934

PATIENT

DRUGS (2)
  1. EMTRICITABINE\TENOFOVIR [Suspect]
     Active Substance: EMTRICITABINE\TENOFOVIR
     Indication: HIV infection
     Dosage: 1100 MILLIGRAM, QD (1 COURSES, EXPOSURE PRIOR TO CONCEPTION AND DURING FIRST TRIMESTER)
     Route: 048
     Dates: start: 20170224
  2. EFAVIRENZ [Suspect]
     Active Substance: EFAVIRENZ
     Indication: HIV infection
     Dosage: 1100 MILLIGRAM, QD (1 COURSES, EXPOSURE PRIOR TO CONCEPTION-YES AND DURING FIRST TRIMESTER)
     Route: 048
     Dates: start: 20170224

REACTIONS (2)
  - Abortion spontaneous [Unknown]
  - Maternal exposure during pregnancy [Unknown]

NARRATIVE: CASE EVENT DATE: 20170822
